FAERS Safety Report 12707603 (Version 1)
Quarter: 2016Q3

REPORT INFORMATION
  Report Type: Report from Study
  Country: DK (occurrence: DK)
  Receive Date: 20160901
  Receipt Date: 20160901
  Transmission Date: 20161109
  Serious: Yes (Hospitalization)
  Sender: FDA-Public Use
  Company Number: DK-ABBVIE-16K-044-1714021-00

PATIENT
  Sex: Male

DRUGS (1)
  1. DUODOPA [Suspect]
     Active Substance: CARBIDOPA\LEVODOPA
     Indication: PARKINSON^S DISEASE
     Route: 050

REACTIONS (6)
  - Device issue [Recovered/Resolved]
  - General physical health deterioration [Unknown]
  - Device connection issue [Unknown]
  - Hospitalisation [Unknown]
  - Terminal state [Unknown]
  - Device dislocation [Recovered/Resolved]
